FAERS Safety Report 5150187-0 (Version None)
Quarter: 2006Q4

REPORT INFORMATION
  Report Type: 
  Country: None (occurrence: None)
  Receive Date: 20061114
  Receipt Date: 20061107
  Transmission Date: 20070319
  Serious: Yes (Hospitalization)
  Sender: FDA-Public Use
  Company Number: IL-BRISTOL-MYERS SQUIBB COMPANY-13571609

PATIENT
  Age: 57 Year
  Sex: Female

DRUGS (4)
  1. CISPLATIN [Suspect]
     Route: 042
  2. ETOPOSIDE [Concomitant]
     Route: 042
  3. SIMVASTIN [Concomitant]
  4. ASPIRIN [Concomitant]

REACTIONS (1)
  - AORTIC THROMBOSIS [None]
